FAERS Safety Report 9165612 (Version 2)
Quarter: 2013Q1

REPORT INFORMATION
  Report Type: Spontaneous
  Country: BR (occurrence: BR)
  Receive Date: 20130315
  Receipt Date: 20130325
  Transmission Date: 20140127
  Serious: Yes (Death, Hospitalization)
  Sender: FDA-Public Use
  Company Number: BR-ROCHE-1188008

PATIENT
  Sex: Female

DRUGS (4)
  1. AVASTIN [Suspect]
     Indication: BREAST CANCER METASTATIC
     Route: 065
  2. TAXOTERE [Suspect]
     Indication: BREAST CANCER
     Route: 065
  3. ZOMETA [Suspect]
     Indication: BREAST CANCER
     Route: 065
  4. DECADRON [Concomitant]
     Route: 065

REACTIONS (4)
  - Disease progression [Fatal]
  - Intestinal perforation [Unknown]
  - Abscess [Not Recovered/Not Resolved]
  - Impaired healing [Unknown]
